FAERS Safety Report 14439416 (Version 2)
Quarter: 2018Q1

REPORT INFORMATION
  Report Type: Spontaneous
  Country: US (occurrence: US)
  Receive Date: 20180125
  Receipt Date: 20180206
  Transmission Date: 20180509
  Serious: Yes (Life-Threatening, Other)
  Sender: FDA-Public Use
  Company Number: US-AUROBINDO-AUR-APL-2018-002939

PATIENT
  Age: 40 Year
  Sex: Male

DRUGS (8)
  1. PROPOFOL. [Concomitant]
     Active Substance: PROPOFOL
     Indication: INDUCTION OF ANAESTHESIA
  2. LIDOCAINE INJECTION [Suspect]
     Active Substance: LIDOCAINE
     Indication: LOCAL ANAESTHESIA
     Dosage: LOCAL ANESTHETIC MIXTURE WAS A 1:1 COMBINATION OF LIDOCAINE 2% WITH 1:100,000 EPINEPHRINE AND BUP...
     Route: 065
  3. EPINEPHRINE. [Concomitant]
     Active Substance: EPINEPHRINE
     Indication: LOCAL ANAESTHESIA
     Dosage: LOCAL ANESTHETIC MIXTURE WAS A 1:1 COMBINATION OF LIDOCAINE 2% WITH 1:100,000 EPINEPHRINE AND BUP...
  4. FENTANYL. [Concomitant]
     Active Substance: FENTANYL
     Indication: INDUCTION OF ANAESTHESIA
     Route: 042
  5. SEVOFLURANE. [Concomitant]
     Active Substance: SEVOFLURANE
     Indication: MAINTENANCE OF ANAESTHESIA
     Dosage: ()
     Route: 055
  6. BUPIVACAINE HYDROCHLORIDE. [Suspect]
     Active Substance: BUPIVACAINE HYDROCHLORIDE
     Indication: LOCAL ANAESTHESIA
     Dosage: LOCAL ANESTHETIC MIXTURE WAS A 1:1 COMBINATION OF LIDOCAINE 2% WITH 1:100,000 EPINEPHRINE AND BUP...
     Route: 065
  7. FENTANYL. [Concomitant]
     Active Substance: FENTANYL
  8. LIDOCAINE. [Concomitant]
     Active Substance: LIDOCAINE
     Indication: INDUCTION OF ANAESTHESIA
     Route: 065

REACTIONS (3)
  - Oculocardiac reflex [Recovered/Resolved]
  - Sinus arrest [Recovered/Resolved]
  - Condition aggravated [Recovered/Resolved]
